FAERS Safety Report 24114141 (Version 2)
Quarter: 2024Q3

REPORT INFORMATION
  Report Type: Spontaneous
  Country: US (occurrence: US)
  Receive Date: 20240720
  Receipt Date: 20240813
  Transmission Date: 20241017
  Serious: No
  Sender: AMGEN
  Company Number: US-AMGEN-USASP2024141877

PATIENT
  Age: 38 Year
  Sex: Male
  Weight: 54.422 kg

DRUGS (2)
  1. PROCRIT [Suspect]
     Active Substance: ERYTHROPOIETIN
     Indication: Product used for unknown indication
     Dosage: 40000
     Route: 058
     Dates: start: 20240606
  2. PROCRIT [Suspect]
     Active Substance: ERYTHROPOIETIN
     Dosage: 20000
     Route: 058

REACTIONS (1)
  - Intercepted product preparation error [Unknown]

NARRATIVE: CASE EVENT DATE: 20240606
